FAERS Safety Report 10909918 (Version 1)
Quarter: 2015Q1

REPORT INFORMATION
  Report Type: Spontaneous
  Country: US (occurrence: US)
  Receive Date: 20150312
  Receipt Date: 20150312
  Transmission Date: 20150721
  Serious: No
  Sender: FDA-Public Use
  Company Number: US-SA-2014SA079091

PATIENT
  Age: 61 Year
  Sex: Male

DRUGS (4)
  1. ALL OTHER THERAPEUTIC PRODUCTS [Concomitant]
     Active Substance: UNSPECIFIED INGREDIENT
  2. ALBUTEROL. [Concomitant]
     Active Substance: ALBUTEROL
  3. NASACORT ALLERGY 24HR [Suspect]
     Active Substance: TRIAMCINOLONE ACETONIDE
     Indication: HYPERSENSITIVITY
     Dosage: DOSE :ONE SPRAY PER NOSTRIL TWICE ON 08-JUN-2014 AND ONCE ON 09-JUN-2014
     Route: 045
     Dates: start: 20140609
  4. NASACORT ALLERGY 24HR [Suspect]
     Active Substance: TRIAMCINOLONE ACETONIDE
     Indication: HYPERSENSITIVITY
     Dosage: DOSE :ONE SPRAY PER NOSTRIL TWICE ON 08-JUN-2014 AND ONCE ON 09-JUN-2014
     Route: 045
     Dates: start: 20140608

REACTIONS (3)
  - Feeling abnormal [Unknown]
  - Burning sensation [Unknown]
  - Dyspnoea [Unknown]
